FAERS Safety Report 6956559 (Version 3)
Quarter: 2013Q1

REPORT INFORMATION
  Report Type: Spontaneous
  Country: US (occurrence: US)
  Receive Date: 20090331
  Receipt Date: 20130301
  Transmission Date: 20140127
  Serious: Yes (Hospitalization)
  Sender: FDA-Public Use
  Company Number: US-ASTRAZENECA-2009UW07581

PATIENT
  Age: 56 Year
  Sex: Female

DRUGS (5)
  1. NEXIUM [Suspect]
     Route: 048
     Dates: start: 20070912
  2. NEXIUM [Suspect]
     Route: 048
  3. SEROQUEL [Suspect]
     Indication: BIPOLAR DISORDER
     Dosage: AT NIGHT
     Route: 048
     Dates: start: 20070912
  4. SEROQUEL [Suspect]
     Indication: ANXIETY
     Dosage: AT NIGHT
     Route: 048
     Dates: start: 20070912
  5. SEROQUEL [Suspect]
     Indication: PANIC ATTACK
     Dosage: AT NIGHT
     Route: 048
     Dates: start: 20070912

REACTIONS (5)
  - Wound infection [Unknown]
  - Asthma [Unknown]
  - Drug intolerance [Unknown]
  - Sedation [Unknown]
  - Abdominal discomfort [Unknown]
